FAERS Safety Report 14901783 (Version 5)
Quarter: 2018Q4

REPORT INFORMATION
  Report Type: Report from Study
  Country: US (occurrence: US)
  Receive Date: 20180516
  Receipt Date: 20181001
  Transmission Date: 20190204
  Serious: Yes (Other)
  Sender: FDA-Public Use
  Company Number: US-PFIZER INC-2018142222

PATIENT
  Age: 53 Year
  Sex: Female

DRUGS (1)
  1. IBRANCE [Suspect]
     Active Substance: PALBOCICLIB
     Indication: BREAST CANCER FEMALE
     Dosage: 125 MG, CYCLIC (ONCE DAILY FOR 21 DAYS IN A ROW FOLLOWED BY 7 DAYS OFF EVERY 28 DAYS)
     Route: 048
     Dates: start: 20180314

REACTIONS (10)
  - White blood cell count decreased [Not Recovered/Not Resolved]
  - Fatigue [Not Recovered/Not Resolved]
  - Oesophageal disorder [Recovering/Resolving]
  - Bone disorder [Unknown]
  - Neoplasm progression [Recovering/Resolving]
  - Stomatitis [Not Recovered/Not Resolved]
  - Disease recurrence [Recovering/Resolving]
  - Neutropenia [Not Recovered/Not Resolved]
  - Gastrointestinal oedema [Recovering/Resolving]
  - Dysphagia [Recovering/Resolving]

NARRATIVE: CASE EVENT DATE: 2018
